FAERS Safety Report 21631454 (Version 2)
Quarter: 2022Q4

REPORT INFORMATION
  Report Type: Spontaneous
  Country: US (occurrence: US)
  Receive Date: 20221123
  Receipt Date: 20221201
  Transmission Date: 20230112
  Serious: No
  Sender: FDA-Public Use
  Company Number: US-AIMMUNE THERAPEUTICS, INC.-2022AIMT02737

PATIENT

DRUGS (3)
  1. PALFORZIA [Suspect]
     Active Substance: PEANUT
     Indication: Food allergy
     Dosage: IDE (0.5-6MG), ONCE
     Route: 048
     Dates: start: 20220725, end: 20220725
  2. PALFORZIA [Suspect]
     Active Substance: PEANUT
     Dosage: 30 MG, 1X/DAY
     Route: 048
     Dates: start: 20221003, end: 20221103
  3. PALFORZIA [Suspect]
     Active Substance: PEANUT
     Dosage: 30 MG, ONCE, LAST DOSE PRIOR TO EVENT (20 MG PACKAGE AND 10 MG FROM A 12 MG PACKAGE)
     Route: 048

REACTIONS (4)
  - Otitis media [Recovered/Resolved]
  - Pyrexia [Recovered/Resolved]
  - Tachypnoea [Recovered/Resolved]
  - Cough [Recovered/Resolved]

NARRATIVE: CASE EVENT DATE: 20221023
